FAERS Safety Report 5141562-9 (Version None)
Quarter: 2006Q4

REPORT INFORMATION
  Report Type: 
  Country: None (occurrence: None)
  Receive Date: 20061030
  Receipt Date: 20061030
  Transmission Date: 20070319
  Serious: Yes (Death)
  Sender: FDA-Public Use
  Company Number: None

PATIENT
  Age: 27 Year
  Sex: Female
  Weight: 110 kg

DRUGS (9)
  1. LAMIVUDINE [Suspect]
     Indication: HIV INFECTION
     Dosage: 150 MG BD PO
     Route: 048
     Dates: start: 20060106, end: 20060914
  2. STAVUDINE [Suspect]
     Indication: HIV INFECTION
     Dosage: 40 MG BD PO
     Route: 048
     Dates: start: 20060106, end: 20060901
  3. NEVIRAPINE [Suspect]
     Indication: HIV INFECTION
     Dosage: 200 MG BD PO
     Route: 048
  4. ASCORBIC ACID [Concomitant]
  5. INH [Concomitant]
  6. PYRIDOXINE HCL [Concomitant]
  7. RIDAQ [Concomitant]
  8. FOLATE [Concomitant]
  9. ENALIPRIL [Concomitant]

REACTIONS (7)
  - CD4 LYMPHOCYTES DECREASED [None]
  - GUILLAIN-BARRE SYNDROME [None]
  - HYPERLACTACIDAEMIA [None]
  - IMMUNOSUPPRESSION [None]
  - LACTIC ACIDOSIS [None]
  - MUSCULAR WEAKNESS [None]
  - RESPIRATORY DISORDER [None]
